APPROVED DRUG PRODUCT: DEPINAR
Active Ingredient: CYANOCOBALAMIN; TANNIC ACID; ZINC ACETATE
Strength: 0.5MG/ML;2.3MG/ML;1MG/ML
Dosage Form/Route: INJECTABLE;INJECTION
Application: N011208 | Product #001
Applicant: ARMOUR PHARMACEUTICAL CO
Approved: Approved Prior to Jan 1, 1982 | RLD: No | RS: No | Type: DISCN